FAERS Safety Report 7571995-2 (Version None)
Quarter: 2011Q2

REPORT INFORMATION
  Report Type: 
  Country: None (occurrence: None)
  Receive Date: 20110624
  Receipt Date: 20110615
  Transmission Date: 20111010
  Serious: Yes (Hospitalization)
  Sender: FDA-Public Use
  Company Number: ZA-ASTRAZENECA-2011SE37090

PATIENT
  Age: 40 Year
  Sex: Male

DRUGS (6)
  1. DIOTROXIN [Concomitant]
  2. CRESTOR [Suspect]
     Route: 048
  3. ATACAND [Concomitant]
     Route: 048
  4. NORVASC [Concomitant]
  5. LEVOTHYROXINE SODIUM [Concomitant]
  6. BENZOFIBRATE [Concomitant]

REACTIONS (2)
  - MYXOEDEMA COMA [None]
  - RHABDOMYOLYSIS [None]
